FAERS Safety Report 6212473-2 (Version None)
Quarter: 2009Q2

REPORT INFORMATION
  Report Type: 
  Country: None (occurrence: None)
  Receive Date: 20090529
  Receipt Date: 20090520
  Transmission Date: 20091009
  Serious: Yes (Disabling)
  Sender: FDA-Public Use
  Company Number: OSCN-NO-0905S-0269

PATIENT
  Age: 63 Year
  Sex: Female

DRUGS (9)
  1. OMNISCAN [Suspect]
     Indication: DRUG USE FOR UNKNOWN INDICATION
     Dosage: SINGLE DOSE, I.V.
     Route: 042
     Dates: start: 20020130, end: 20020130
  2. EPOETIN BETA (NEORECORMON) [Concomitant]
  3. RENAGEL [Concomitant]
  4. ALFACALCIDOL (ETALPHA) [Concomitant]
  5. FOLIC ACID [Concomitant]
  6. WARFARIN SODIUM [Concomitant]
  7. C-VITAMIN [Concomitant]
  8. CALCIUMCARBONAT [Concomitant]
  9. B-COMBIN ^SAD^ [Concomitant]

REACTIONS (4)
  - HAEMODIALYSIS [None]
  - NEPHROGENIC SYSTEMIC FIBROSIS [None]
  - SKIN ULCER [None]
  - VARICOSE VEIN [None]
